FAERS Safety Report 4521567-9 (Version None)
Quarter: 2004Q4

REPORT INFORMATION
  Report Type: 
  Country: None (occurrence: None)
  Receive Date: 20041206
  Receipt Date: 20041122
  Transmission Date: 20050328
  Serious: No
  Sender: FDA-Public Use
  Company Number: 2004UW23940

PATIENT
  Age: 9 Year
  Sex: Female
  Weight: 13.607 kg

DRUGS (2)
  1. SEROQUEL [Suspect]
     Dates: start: 20040801
  2. LEXAPRO [Concomitant]

REACTIONS (4)
  - CONFUSIONAL STATE [None]
  - DRUG ABUSER [None]
  - SEXUAL ACTIVITY INCREASED [None]
  - SUICIDAL IDEATION [None]
